FAERS Safety Report 9734782 (Version 1)
Quarter: 2013Q4

REPORT INFORMATION
  Report Type: Report from Study
  Country: CA (occurrence: CA)
  Receive Date: 20131206
  Receipt Date: 20131206
  Transmission Date: 20140711
  Serious: Yes (Hospitalization)
  Sender: FDA-Public Use
  Company Number: CA-JNJFOC-20131118686

PATIENT
  Age: 52 Year
  Sex: Male
  Weight: 68.5 kg

DRUGS (17)
  1. REMICADE [Suspect]
     Indication: CROHN^S DISEASE
     Route: 042
     Dates: start: 20071024
  2. REMICADE [Suspect]
     Indication: CROHN^S DISEASE
     Route: 042
     Dates: start: 20131015
  3. DILANTIN [Concomitant]
     Route: 065
     Dates: start: 20131110
  4. KETODERM [Concomitant]
     Route: 061
     Dates: start: 20131110
  5. NICODERM PATCH [Concomitant]
     Route: 065
     Dates: start: 20120812
  6. INVANZ [Concomitant]
     Dosage: FOR 7 DAYS
     Route: 042
     Dates: start: 20131110
  7. STATEX [Concomitant]
     Dosage: AS NECESSARY
     Route: 065
     Dates: start: 20131110
  8. POTASSIUM CHLORIDE [Concomitant]
     Route: 065
     Dates: start: 20131110
  9. PRIMIDONE [Concomitant]
     Route: 065
     Dates: start: 20131110
  10. DILANTIN [Concomitant]
     Route: 065
     Dates: start: 20131110
  11. MULTIVITAMINS + MINERALS PLUS LUTEIN [Concomitant]
     Route: 065
     Dates: start: 20131110
  12. PMS-DIPHENHYDRAMINE [Concomitant]
     Route: 065
     Dates: start: 20131110
  13. LOPERAMIDE [Concomitant]
     Route: 065
     Dates: start: 20131110
  14. CARBAMAZEPINE [Concomitant]
     Route: 065
     Dates: start: 20131110
  15. CAL 500 [Concomitant]
     Route: 065
     Dates: start: 20131110
  16. FERROUS SULFATE [Concomitant]
     Route: 065
     Dates: start: 20131110
  17. CHOLECALCIFEROL [Concomitant]
     Route: 065
     Dates: start: 20131110

REACTIONS (1)
  - Infarction [Not Recovered/Not Resolved]
